FAERS Safety Report 7630790-6 (Version None)
Quarter: 2011Q3

REPORT INFORMATION
  Report Type: 
  Country: None (occurrence: None)
  Receive Date: 20110722
  Receipt Date: 20110713
  Transmission Date: 20111222
  Serious: Yes (Other)
  Sender: FDA-Public Use
  Company Number: DE-AMGEN-DEUSP2011031228

PATIENT
  Age: 83 Year
  Sex: Female

DRUGS (5)
  1. TRAMADOL HYDROCHLORIDE [Concomitant]
     Route: 048
  2. BERODUAL [Concomitant]
     Route: 055
  3. PROLIA [Suspect]
     Indication: PRODUCT USED FOR UNKNOWN INDICATION
     Dosage: 60 MG, ONE TIME DOSE
     Route: 058
     Dates: start: 20101115
  4. RAMIPRIL [Concomitant]
     Dosage: 5 MG, UNK
     Route: 048
  5. TORSEMIDE [Concomitant]
     Dosage: 5 MG, UNK
     Route: 048

REACTIONS (1)
  - COLITIS ULCERATIVE [None]
